FAERS Safety Report 8254481-6 (Version None)
Quarter: 2012Q2

REPORT INFORMATION
  Report Type: 
  Country: None (occurrence: None)
  Receive Date: 20120403
  Receipt Date: 20120326
  Transmission Date: 20120825
  Serious: No
  Sender: FDA-Public Use
  Company Number: US-BIOGENIDEC-2011BI034349

PATIENT
  Sex: Female

DRUGS (3)
  1. ANTIBIOTICS (NOS) [Concomitant]
  2. TYSABRI [Suspect]
     Indication: CROHN'S DISEASE
     Route: 042
     Dates: start: 20090815
  3. TYSABRI [Suspect]
     Indication: MULTIPLE SCLEROSIS
     Route: 042
     Dates: start: 20090815

REACTIONS (7)
  - HEADACHE [None]
  - CROHN'S DISEASE [None]
  - DRUG HYPERSENSITIVITY [None]
  - ADVERSE DRUG REACTION [None]
  - DRUG INEFFECTIVE [None]
  - CONSTIPATION [None]
  - MULTIPLE SCLEROSIS RELAPSE [None]
